FAERS Safety Report 5288509-2 (Version None)
Quarter: 2007Q2

REPORT INFORMATION
  Report Type: 
  Country: None (occurrence: None)
  Receive Date: 20070405
  Receipt Date: 20070328
  Transmission Date: 20071010
  Serious: Yes (Hospitalization, Other)
  Sender: FDA-Public Use
  Company Number: HQWYE892110DEC04

PATIENT
  Sex: Male
  Weight: 47.67 kg

DRUGS (5)
  1. PROTONIX [Suspect]
     Indication: GASTROOESOPHAGEAL REFLUX DISEASE
     Route: 048
     Dates: start: 20030101
  2. CORTISONE ACETATE [Concomitant]
     Indication: ARTHRALGIA
     Dosage: DOSE UNSPECIFIED, TAKEN AS NEEDED, STARTED PRIOR TO 2003
  3. OXYCONTIN [Concomitant]
     Indication: FIBROMYALGIA
     Dosage: DOSE UNSPECIFIED, TAKEN BID, STARTED PRIOR TO 2003
     Route: 065
  4. OXYCONTIN [Concomitant]
     Indication: ARTHRITIS
  5. OXYCONTIN [Concomitant]
     Indication: PAIN

REACTIONS (9)
  - ANOREXIA [None]
  - COMA [None]
  - GINGIVAL ATROPHY [None]
  - INSOMNIA [None]
  - JOINT DISLOCATION [None]
  - LIBIDO DECREASED [None]
  - PROSTATIC DISORDER [None]
  - WEIGHT DECREASED [None]
  - WEIGHT GAIN POOR [None]
